FAERS Safety Report 7179774-5 (Version None)
Quarter: 2010Q4

REPORT INFORMATION
  Report Type: 
  Country: None (occurrence: None)
  Receive Date: 20101221
  Receipt Date: 20100708
  Transmission Date: 20110411
  Serious: No
  Sender: FDA-Public Use
  Company Number: US-BRISTOL-MYERS SQUIBB COMPANY-15189301

PATIENT
  Age: 88 Year
  Sex: Male

DRUGS (2)
  1. QUESTRAN [Suspect]
     Indication: IRRITABLE BOWEL SYNDROME
     Dosage: 1 DF = ONE PACKET 3 TIMES A DAY. THERAPY ONGOING.
     Route: 048
  2. QUESTRAN [Suspect]
     Indication: DIARRHOEA
     Dosage: 1 DF = ONE PACKET 3 TIMES A DAY. THERAPY ONGOING.
     Route: 048

REACTIONS (1)
  - THROAT IRRITATION [None]
